FAERS Safety Report 8910242 (Version 3)
Quarter: 2013Q3

REPORT INFORMATION
  Report Type: Spontaneous
  Country: US (occurrence: US)
  Receive Date: 20121115
  Receipt Date: 20130918
  Transmission Date: 20140515
  Serious: No
  Sender: FDA-Public Use
  Company Number: US-BIOGENIDEC-2012BI050633

PATIENT
  Age: 57 Year
  Sex: Male

DRUGS (1)
  1. TYSABRI [Suspect]
     Indication: MULTIPLE SCLEROSIS
     Route: 042
     Dates: start: 20120803

REACTIONS (5)
  - Depressed mood [Unknown]
  - Vertigo [Recovered/Resolved]
  - Musculoskeletal disorder [Recovered/Resolved]
  - Gait disturbance [Not Recovered/Not Resolved]
  - Asthenia [Recovered/Resolved]
